FAERS Safety Report 14974543 (Version 2)
Quarter: 2023Q2

REPORT INFORMATION
  Report Type: Other
  Country: CZ (occurrence: CZ)
  Receive Date: 20180605
  Receipt Date: 20230410
  Transmission Date: 20230721
  Serious: Yes (Other)
  Sender: FDA-Public Use
  Company Number: CZ-CELLTRION INC.-2017CZ017371

PATIENT

DRUGS (2)
  1. INFLIXIMAB [Suspect]
     Active Substance: INFLIXIMAB
     Indication: Rheumatoid arthritis
     Dosage: 100 MG
     Route: 042
     Dates: start: 20150717, end: 20150717
  2. INFLIXIMAB [Suspect]
     Active Substance: INFLIXIMAB
     Dosage: 100 MG
     Route: 042
     Dates: start: 20171208, end: 20171208

REACTIONS (2)
  - Drug specific antibody present [Not Recovered/Not Resolved]
  - Incorrect dose administered [Unknown]

NARRATIVE: CASE EVENT DATE: 20170929
